FAERS Safety Report 7236553-8 (Version None)
Quarter: 2011Q1

REPORT INFORMATION
  Report Type: 
  Country: None (occurrence: None)
  Receive Date: 20110120
  Receipt Date: 20110113
  Transmission Date: 20110831
  Serious: Yes (Other)
  Sender: FDA-Public Use
  Company Number: US-US-EMD SERONO, INC.-232735J09USA

PATIENT
  Sex: Female

DRUGS (5)
  1. HYDROCHLOROTHIAZIDE [Concomitant]
     Indication: HYPERTENSION
  2. REBIF [Suspect]
     Indication: MULTIPLE SCLEROSIS
     Route: 058
     Dates: start: 20081223
  3. COZAAR [Concomitant]
     Indication: HYPERTENSION
  4. CALTRATE 600 WITH VITAMIN D [Concomitant]
     Indication: PAIN IN EXTREMITY
  5. ACTONEL [Concomitant]
     Indication: BONE DENSITY DECREASED

REACTIONS (2)
  - DEPRESSION [None]
  - BASAL CELL CARCINOMA [None]
